FAERS Safety Report 10163243 (Version 1)
Quarter: 2014Q2

REPORT INFORMATION
  Report Type: Spontaneous
  Country: IT (occurrence: IT)
  Receive Date: 20140509
  Receipt Date: 20140509
  Transmission Date: 20141212
  Serious: Yes (Other)
  Sender: FDA-Public Use
  Company Number: IT-BRISTOL-MYERS SQUIBB COMPANY-20700860

PATIENT
  Age: 16 Year
  Sex: Male

DRUGS (1)
  1. ABILIFY TABS 10 MG [Suspect]
     Indication: PSYCHOTIC DISORDER
     Route: 048
     Dates: start: 201212

REACTIONS (12)
  - Psychotic disorder [Not Recovered/Not Resolved]
  - Depression [Not Recovered/Not Resolved]
  - Aggression [Not Recovered/Not Resolved]
  - Suicide attempt [Not Recovered/Not Resolved]
  - Psoriasis [Not Recovered/Not Resolved]
  - Alopecia [Not Recovered/Not Resolved]
  - Anxiety [Not Recovered/Not Resolved]
  - Weight increased [Not Recovered/Not Resolved]
  - Tremor [Not Recovered/Not Resolved]
  - Akathisia [Not Recovered/Not Resolved]
  - Drug ineffective [Unknown]
  - Off label use [Unknown]
